FAERS Safety Report 9323621 (Version 1)
Quarter: 2013Q2

REPORT INFORMATION
  Report Type: Spontaneous
  Country: FR (occurrence: FR)
  Receive Date: 20130603
  Receipt Date: 20130603
  Transmission Date: 20140414
  Serious: Yes (Other)
  Sender: FDA-Public Use
  Company Number: FR-JNJFOC-20130519115

PATIENT
  Age: 53 Year
  Sex: Male
  Weight: 84 kg

DRUGS (4)
  1. XARELTO [Suspect]
     Indication: CEREBROVASCULAR ACCIDENT PROPHYLAXIS
     Route: 048
     Dates: start: 20130109, end: 20130422
  2. XARELTO [Suspect]
     Indication: ATRIAL FIBRILLATION
     Route: 048
     Dates: start: 20130109, end: 20130422
  3. DIGOXINE [Concomitant]
     Indication: ATRIAL FIBRILLATION
     Route: 048
  4. VERAPAMIL [Concomitant]
     Indication: ATRIAL FIBRILLATION
     Route: 048

REACTIONS (2)
  - Myalgia [Recovered/Resolved]
  - Paraesthesia [Unknown]
